FAERS Safety Report 14319006 (Version 2)
Quarter: 2017Q4

REPORT INFORMATION
  Report Type: Spontaneous
  Country: DE (occurrence: DE)
  Receive Date: 20171222
  Receipt Date: 20171229
  Transmission Date: 20180321
  Serious: Yes (Hospitalization, Other)
  Sender: FDA-Public Use
  Company Number: DE-JNJFOC-20171228255

PATIENT
  Age: 50 Year
  Sex: Male

DRUGS (5)
  1. PEMBROLIZUMAB. [Concomitant]
     Active Substance: PEMBROLIZUMAB
     Indication: PRODUCT USED FOR UNKNOWN INDICATION
     Route: 065
  2. TARGIN [Suspect]
     Active Substance: NALOXONE HYDROCHLORIDE\OXYCODONE HYDROCHLORIDE
     Indication: FLANK PAIN
     Route: 065
     Dates: start: 20170821
  3. NOVALGIN [Suspect]
     Active Substance: METAMIZOLE SODIUM
     Indication: FLANK PAIN
     Route: 065
  4. IPILIMUMAB [Suspect]
     Active Substance: IPILIMUMAB
     Indication: MALIGNANT MELANOMA
     Route: 042
     Dates: start: 20170628, end: 20170810
  5. TRAMADOL HYDROCHLORIDE. [Suspect]
     Active Substance: TRAMADOL HYDROCHLORIDE
     Indication: FLANK PAIN
     Dosage: STRENGTH 100MG/ ML
     Route: 065

REACTIONS (6)
  - Malignant neoplasm progression [Unknown]
  - Flank pain [Not Recovered/Not Resolved]
  - Autoimmune hepatitis [Unknown]
  - Hypersensitivity [Unknown]
  - Urinary retention [Not Recovered/Not Resolved]
  - Dysuria [Unknown]

NARRATIVE: CASE EVENT DATE: 20170813
